FAERS Safety Report 11867282 (Version 2)
Quarter: 2016Q1

REPORT INFORMATION
  Report Type: Spontaneous
  Country: US (occurrence: US)
  Receive Date: 20151224
  Receipt Date: 20160203
  Transmission Date: 20160526
  Serious: Yes (Death, Hospitalization, Other)
  Sender: FDA-Public Use
  Company Number: US-PFIZER INC-2015448046

PATIENT
  Age: 69 Year
  Sex: Male
  Weight: 72 kg

DRUGS (8)
  1. CELLCEPT [Concomitant]
     Active Substance: MYCOPHENOLATE MOFETIL\MYCOPHENOLATE MOFETIL HYDROCHLORIDE
  2. POTASSIUM [Concomitant]
     Active Substance: POTASSIUM
  3. CYCLOVIR [Concomitant]
  4. VFEND [Suspect]
     Active Substance: VORICONAZOLE
     Indication: FUNGAL INFECTION
     Dosage: 200 MG, 2X/DAY
  5. VITAMIN K [Concomitant]
     Active Substance: PHYTONADIONE
  6. PENICILLIN B [Concomitant]
     Active Substance: PHENETICILLIN
  7. CALCIUM [Concomitant]
     Active Substance: CALCIUM
  8. VITAMIN D3 [Concomitant]
     Active Substance: CHOLECALCIFEROL

REACTIONS (15)
  - Blood bilirubin increased [Unknown]
  - Pulmonary fibrosis [Unknown]
  - Vomiting [Not Recovered/Not Resolved]
  - Pneumonia klebsiella [Fatal]
  - Respiratory failure [Fatal]
  - Nausea [Not Recovered/Not Resolved]
  - Pneumonia bacterial [Fatal]
  - Haematochezia [Unknown]
  - Dyspnoea [Unknown]
  - Chronic graft versus host disease [Fatal]
  - Dehydration [Unknown]
  - Hypoxia [Unknown]
  - Abdominal pain [Not Recovered/Not Resolved]
  - Failure to thrive [Unknown]
  - Gastrointestinal disorder [Unknown]

NARRATIVE: CASE EVENT DATE: 20151130
